FAERS Safety Report 13013090 (Version 1)
Quarter: 2016Q4

REPORT INFORMATION
  Report Type: Spontaneous
  Country: US (occurrence: US)
  Receive Date: 20161208
  Receipt Date: 20161208
  Transmission Date: 20170207
  Serious: Yes (Hospitalization)
  Sender: FDA-Public Use
  Company Number: None

PATIENT
  Age: 60 Year
  Sex: Male
  Weight: 90 kg

DRUGS (6)
  1. PALIPERIDONE. [Concomitant]
     Active Substance: PALIPERIDONE
  2. KEPPRA [Concomitant]
     Active Substance: LEVETIRACETAM
  3. CLONAZEPAM. [Suspect]
     Active Substance: CLONAZEPAM
     Indication: ABNORMAL BEHAVIOUR
     Route: 048
     Dates: start: 20161128, end: 20161208
  4. PROPRANOLOL [Concomitant]
     Active Substance: PROPRANOLOL\PROPRANOLOL HYDROCHLORIDE
  5. CLONAZEPAM. [Suspect]
     Active Substance: CLONAZEPAM
     Indication: IMPULSE-CONTROL DISORDER
     Route: 048
     Dates: start: 20161128, end: 20161208
  6. OLANZAPINE. [Concomitant]
     Active Substance: OLANZAPINE

REACTIONS (1)
  - Unresponsive to stimuli [None]

NARRATIVE: CASE EVENT DATE: 20161208
